FAERS Safety Report 21057787 (Version 2)
Quarter: 2024Q3

REPORT INFORMATION
  Report Type: Report from Study
  Country: US (occurrence: US)
  Receive Date: 20220708
  Receipt Date: 20240729
  Transmission Date: 20241017
  Serious: Yes (Life-Threatening, Hospitalization)
  Sender: RECORDATI
  Company Number: US-SAMOHPHARM-2022003096

PATIENT

DRUGS (5)
  1. CARBAGLU [Suspect]
     Active Substance: CARGLUMIC ACID
     Indication: Propionic acidaemia
     Dosage: 800 MILLIGRAM, QID
     Route: 048
  2. CARBAGLU [Suspect]
     Active Substance: CARGLUMIC ACID
     Dosage: 4 AND ONE-HALF TABLETS OF 200MG IN 2.5 ML OF WATER PER TABLET DAILY
     Route: 048
  3. CARBAGLU [Suspect]
     Active Substance: CARGLUMIC ACID
     Dosage: 1000 MILLIGRAM, QID
     Route: 048
  4. PHENOBARBITAL [Concomitant]
     Active Substance: PHENOBARBITAL
     Indication: Product used for unknown indication
     Dosage: 20 MG/5 ML ELIXIR
     Dates: start: 20180427
  5. LEVOCARNITINE [Concomitant]
     Active Substance: LEVOCARNITINE
     Indication: Product used for unknown indication
     Dosage: 100 MG/ML SOLUTION
     Dates: start: 20180427

REACTIONS (5)
  - Hyperammonaemic crisis [Unknown]
  - Vomiting [Unknown]
  - Vomiting [Unknown]
  - Vomiting [Unknown]
  - Weight decreased [Unknown]

NARRATIVE: CASE EVENT DATE: 20220525
